FAERS Safety Report 8552090-2 (Version None)
Quarter: 2012Q3

REPORT INFORMATION
  Report Type: 
  Country: None (occurrence: None)
  Receive Date: 20120731
  Receipt Date: 20120723
  Transmission Date: 20120928
  Serious: Yes (Hospitalization)
  Sender: FDA-Public Use
  Company Number: US-BIOGENIDEC-2012BI027557

PATIENT
  Sex: Female

DRUGS (3)
  1. TYSABRI [Suspect]
     Indication: MULTIPLE SCLEROSIS
     Route: 042
     Dates: start: 20070613, end: 20091120
  2. TYSABRI [Suspect]
     Route: 042
     Dates: start: 20110714
  3. TYSABRI [Suspect]
     Route: 042
     Dates: start: 20100622, end: 20100927

REACTIONS (1)
  - PILONIDAL CYST [None]
